FAERS Safety Report 23894488 (Version 2)
Quarter: 2024Q2

REPORT INFORMATION
  Report Type: Spontaneous
  Country: DE (occurrence: DE)
  Receive Date: 20240524
  Receipt Date: 20240608
  Transmission Date: 20240716
  Serious: Yes (Hospitalization, Other)
  Sender: FDA-Public Use
  Company Number: DE-AUROBINDO-AUR-APL-2024-024780

PATIENT
  Sex: Male
  Weight: 94.7 kg

DRUGS (24)
  1. CLOZAPINE [Suspect]
     Active Substance: CLOZAPINE
     Indication: Schizophrenia
     Dosage: 950 MILLIGRAM (TOTAL DAILY DOSIS) OF CLOZAPIN ALTERNATELY FROM TWO MAHS: 1A PHARMA OR PUREN PHARMA)
     Route: 048
     Dates: start: 20240208
  2. CLOZAPINE [Suspect]
     Active Substance: CLOZAPINE
     Indication: Schizophrenia
     Dosage: 950 MILLIGRAM (TOTAL DAILY DOSIS OF CLOZAPIN ALTERNATELY FROM DIFFERENT MAHS)
     Route: 048
     Dates: start: 20240208
  3. CLOZAPINE [Suspect]
     Active Substance: CLOZAPINE
     Indication: Schizophrenia
     Dosage: 950 MILLIGRAM (TOTAL DAILY DOSIS OF CLOZAPIN ALTERNATELY FROM DIFFERENT MAHS)
     Route: 048
     Dates: start: 20240208
  4. CLOZAPINE [Suspect]
     Active Substance: CLOZAPINE
     Indication: Schizophrenia
     Dosage: 950 MILLIGRAM 1X IN THE EVENING (AT 10 PM) 950 MG (TOTAL DAILY DOSIS OF CLOZAPIN ALTERNATELY FROM DI
     Route: 048
     Dates: start: 20240208
  5. CLOZAPINE [Suspect]
     Active Substance: CLOZAPINE
     Indication: Schizophrenia
     Dosage: 950 MILLIGRAM 1X IN MORNING (8 AM), 2X IN THE EVENING (AT 6 PM AND 10 PM) 950 MG (TOTAL DAILY DOSIS
     Route: 048
     Dates: start: 20240208
  6. AMISULPRIDE [Concomitant]
     Active Substance: AMISULPRIDE
     Indication: Product used for unknown indication
     Dosage: UNK (4X IN THE MORNING AND 3X IN THE EVENING)
     Route: 048
     Dates: start: 20240116
  7. AMISULPRID AAA [Concomitant]
     Indication: Psychotic disorder
     Dosage: UNK (1X DAILY IN THE EVENING (10 PM))
     Route: 048
     Dates: start: 20240208
  8. AMISULPRID AAA [Concomitant]
     Indication: Psychotic disorder
     Dosage: UNK (1X DAILY IN THE MORNING (8 AM))
     Route: 048
     Dates: start: 20240208
  9. AMISULPRID AAA [Concomitant]
     Indication: Psychotic disorder
     Dosage: UNK (1X DAILY IN THE EVENING (10 PM))
     Route: 048
     Dates: start: 20240208
  10. BISOPROLOL [Concomitant]
     Active Substance: BISOPROLOL\BISOPROLOL FUMARATE
     Indication: Product used for unknown indication
     Dosage: UNK (2X IN THE MORNING AND 1X AT NIGHT)
     Route: 048
     Dates: start: 20240116
  11. BISOPROLOL [Concomitant]
     Active Substance: BISOPROLOL\BISOPROLOL FUMARATE
     Indication: Product used for unknown indication
     Dosage: UNK (1X DAILY IN THE EVENING (10 PM))
     Route: 048
     Dates: start: 20240218
  12. BISOPROLOL [Concomitant]
     Active Substance: BISOPROLOL\BISOPROLOL FUMARATE
     Indication: Product used for unknown indication
     Dosage: UNK (1X DAILY IN THE MORNING)
     Route: 048
     Dates: start: 20240208
  13. LEUCOVORIN [Concomitant]
     Active Substance: LEUCOVORIN\LEUCOVORIN CALCIUM
     Indication: Anaemia
     Dosage: UNK (1X DAILY IN THE MORNING)
     Route: 048
     Dates: start: 20240518
  14. GASTROZEPIN [Concomitant]
     Active Substance: PIRENZEPINE HYDROCHLORIDE
     Indication: Product used for unknown indication
     Dosage: UNK (1X IN THE MORNING AND 1X DAILY IN THE EVENING)
     Route: 048
     Dates: start: 20240518
  15. LAMOTRIGINE [Concomitant]
     Active Substance: LAMOTRIGINE
     Indication: Product used for unknown indication
     Dosage: UNK (1X IN THE MORNING AND 1X AT NIGHT)
     Route: 048
     Dates: start: 20240116
  16. LAMOTRIGINE [Concomitant]
     Active Substance: LAMOTRIGINE
     Indication: Epilepsy
     Dosage: UNK (1X IN THE MORNING (8 AM) AND 1X IN THE EVENING (10 PM))
     Route: 048
     Dates: start: 20240208
  17. LAMOTRIGINE [Concomitant]
     Active Substance: LAMOTRIGINE
     Indication: Epilepsy
     Dosage: UNK (1X IN THE MORNING (8 AM) AND 1X IN THE EVENING (10 PM))
     Route: 048
     Dates: start: 20240208
  18. PANTOPRAZOLE SODIUM [Concomitant]
     Active Substance: PANTOPRAZOLE SODIUM
     Indication: Product used for unknown indication
     Dosage: UNK (1X IN THE MORNING AND 1X IN THE EVENING)
     Route: 048
     Dates: start: 20240201
  19. PANTOPRAZOLE SODIUM [Concomitant]
     Active Substance: PANTOPRAZOLE SODIUM
     Indication: Acidosis
     Dosage: UNK (1X IN THE MORNING (8 AM) AND 1X IN THE EVENING (6 PM))
     Route: 048
     Dates: start: 20240208
  20. PIRENZEPINE [Concomitant]
     Active Substance: PIRENZEPINE
     Indication: Product used for unknown indication
     Dosage: UNK (1X IN THE MORNING AND 1X IN THE EVENING)
     Route: 048
     Dates: start: 20240517
  21. Riopan [Concomitant]
     Indication: Dyspepsia
     Dosage: UNK (1X (NOT FURTHER SPECIFIED))
     Route: 048
     Dates: start: 20240226
  22. CHLORPROTHIXENE HYDROCHLORIDE [Concomitant]
     Active Substance: CHLORPROTHIXENE HYDROCHLORIDE
     Indication: Restlessness
     Dosage: UNK (1X (NOT FURTHER SPECIFIED))
     Route: 048
     Dates: start: 20240311
  23. CHLORPROTHIXENE HYDROCHLORIDE [Concomitant]
     Active Substance: CHLORPROTHIXENE HYDROCHLORIDE
     Indication: Sleep disorder
  24. IBU [Concomitant]
     Active Substance: IBUPROFEN
     Indication: Headache
     Dosage: UNK (1X (NOT FURTHER SPECIFIED))
     Route: 048
     Dates: start: 20240116

REACTIONS (8)
  - Influenza like illness [Unknown]
  - Aphonia [Unknown]
  - Oropharyngeal pain [Unknown]
  - Pyrexia [Unknown]
  - Overdose [Unknown]
  - Pain in extremity [Unknown]
  - Fatigue [Unknown]
  - Diarrhoea [Unknown]

NARRATIVE: CASE EVENT DATE: 20240420
